FAERS Safety Report 16775873 (Version 1)
Quarter: 2019Q3

REPORT INFORMATION
  Report Type: Report from Study
  Country: US (occurrence: US)
  Receive Date: 20190905
  Receipt Date: 20190905
  Transmission Date: 20191005
  Serious: Yes (Other)
  Sender: FDA-Public Use
  Company Number: US-JNJFOC-20170224797

PATIENT
  Age: 77 Year
  Sex: Male

DRUGS (8)
  1. IMBRUVICA [Suspect]
     Active Substance: IBRUTINIB
     Route: 048
     Dates: start: 201810
  2. POTASSIUM [Concomitant]
     Active Substance: POTASSIUM
  3. IMBRUVICA [Suspect]
     Active Substance: IBRUTINIB
     Indication: CHRONIC LYMPHOCYTIC LEUKAEMIA
     Route: 048
     Dates: start: 20170117, end: 20171001
  4. IMBRUVICA [Suspect]
     Active Substance: IBRUTINIB
     Route: 048
     Dates: start: 20170711
  5. IMBRUVICA [Suspect]
     Active Substance: IBRUTINIB
     Route: 048
     Dates: start: 20171001, end: 20181230
  6. IMBRUVICA [Suspect]
     Active Substance: IBRUTINIB
     Route: 048
     Dates: start: 20170119
  7. IMBRUVICA [Suspect]
     Active Substance: IBRUTINIB
     Route: 048
     Dates: start: 20181230
  8. HYDRALAZINE HYDROCHLORIDE. [Concomitant]
     Active Substance: HYDRALAZINE HYDROCHLORIDE
     Indication: BLOOD PRESSURE ABNORMAL

REACTIONS (22)
  - Prostatomegaly [Recovered/Resolved]
  - Myalgia [Recovering/Resolving]
  - Nasopharyngitis [Unknown]
  - Musculoskeletal pain [Unknown]
  - Nerve compression [Recovering/Resolving]
  - Tooth extraction [Recovered/Resolved]
  - Muscle spasms [Recovering/Resolving]
  - White blood cell count decreased [Recovered/Resolved]
  - Head discomfort [Unknown]
  - Dry eye [Unknown]
  - Nasal congestion [Unknown]
  - Neck pain [Recovering/Resolving]
  - Infection [Unknown]
  - Gout [Recovered/Resolved]
  - Dental implantation [Unknown]
  - Back pain [Recovered/Resolved]
  - Sinusitis [Unknown]
  - Fatigue [Recovering/Resolving]
  - Cataract [Unknown]
  - Rhinorrhoea [Unknown]
  - Haematuria [Unknown]
  - Nausea [Recovered/Resolved]

NARRATIVE: CASE EVENT DATE: 20170202
